FAERS Safety Report 17097400 (Version 1)
Quarter: 2019Q4

REPORT INFORMATION
  Report Type: Spontaneous
  Country: US (occurrence: US)
  Receive Date: 20191202
  Receipt Date: 20191202
  Transmission Date: 20200122
  Serious: No
  Sender: FDA-Public Use
  Company Number: NVSC2019US053296

PATIENT
  Sex: Female

DRUGS (1)
  1. PIQRAY [Suspect]
     Active Substance: ALPELISIB
     Indication: PRODUCT USED FOR UNKNOWN INDICATION
     Dosage: 150 MG
     Route: 065

REACTIONS (5)
  - Dry mouth [Unknown]
  - Tongue eruption [Unknown]
  - Dry eye [Unknown]
  - Vision blurred [Recovering/Resolving]
  - Rash [Unknown]
